FAERS Safety Report 7554640-1 (Version None)
Quarter: 2011Q2

REPORT INFORMATION
  Report Type: 
  Country: None (occurrence: None)
  Receive Date: 20110617
  Receipt Date: 20110404
  Transmission Date: 20111010
  Serious: No
  Sender: FDA-Public Use
  Company Number: -MYLANLABS-2011S1007038

PATIENT
  Age: 48 Year
  Sex: Male
  Weight: 149.7 kg

DRUGS (11)
  1. TRIAMCINOLONE [Concomitant]
  2. CELLCEPT [Concomitant]
  3. BACTROBAN [Concomitant]
  4. ZOLOFT [Concomitant]
  5. NIFEDIPINE [Suspect]
     Indication: BLOOD PRESSURE
  6. ATACAND [Concomitant]
  7. PREDNISONE [Concomitant]
  8. XANAX [Concomitant]
  9. PROCARDIA XL [Suspect]
     Indication: BLOOD PRESSURE
     Dates: start: 19970101
  10. PROCARDIA [Suspect]
     Indication: BLOOD PRESSURE
     Route: 048
     Dates: start: 19970101
  11. HEMORRHOIDAL HC /00028604/ [Concomitant]

REACTIONS (2)
  - BLOOD PRESSURE INCREASED [None]
  - DRUG INEFFECTIVE [None]
